FAERS Safety Report 5905692-3 (Version None)
Quarter: 2008Q4

REPORT INFORMATION
  Report Type: 
  Country: None (occurrence: None)
  Receive Date: 20081001
  Receipt Date: 20081001
  Transmission Date: 20090506
  Serious: Yes (Life-Threatening, Hospitalization)
  Sender: FDA-Public Use
  Company Number: None

PATIENT
  Age: 58 Year
  Sex: Male
  Weight: 99.7913 kg

DRUGS (1)
  1. PROAIR HFA [Suspect]
     Indication: ASTHMA
     Dosage: 90 MCG AS NEEDED INHAL, 1 DOSE
     Route: 055
     Dates: start: 20080929, end: 20080929

REACTIONS (2)
  - FEELING ABNORMAL [None]
  - URTICARIA [None]
